FAERS Safety Report 8081539-7 (Version None)
Quarter: 2012Q1

REPORT INFORMATION
  Report Type: 
  Country: None (occurrence: None)
  Receive Date: 20120130
  Receipt Date: 20120120
  Transmission Date: 20120608
  Serious: Yes (Hospitalization, Other)
  Sender: FDA-Public Use
  Company Number: CA-ABBOTT-12P-028-0894822-00

PATIENT
  Sex: Female
  Weight: 47.67 kg

DRUGS (1)
  1. HUMIRA [Suspect]
     Indication: CROHN'S DISEASE
     Route: 058
     Dates: start: 20101220, end: 20110601

REACTIONS (4)
  - CROHN'S DISEASE [None]
  - IRON DEFICIENCY [None]
  - GASTROINTESTINAL INFLAMMATION [None]
  - ULCER [None]
